FAERS Safety Report 24846948 (Version 1)
Quarter: 2025Q1

REPORT INFORMATION
  Report Type: Report from Study
  Country: US (occurrence: US)
  Receive Date: 20250115
  Receipt Date: 20250115
  Transmission Date: 20250408
  Serious: Yes (Other)
  Sender: ABBVIE
  Company Number: US-ABBVIE-6067017

PATIENT
  Age: 49 Year
  Sex: Female

DRUGS (4)
  1. HUMIRA [Suspect]
     Active Substance: ADALIMUMAB
     Indication: Ankylosing spondylitis
     Dosage: FORM STRENGTH- 40MG/0.4ML
     Route: 058
     Dates: start: 20211206, end: 20241202
  2. HUMIRA [Suspect]
     Active Substance: ADALIMUMAB
     Route: 058
     Dates: start: 20250104
  3. GABAPENTIN [Concomitant]
     Active Substance: GABAPENTIN
     Indication: Plantar fasciitis
  4. OXYCODONE [Concomitant]
     Active Substance: OXYCODONE
     Indication: Product used for unknown indication

REACTIONS (7)
  - Endometriosis [Unknown]
  - Uterine leiomyoma [Unknown]
  - Psoriasis [Unknown]
  - Ovarian cyst [Recovered/Resolved]
  - Uterine enlargement [Unknown]
  - Muscle spasms [Unknown]
  - Fallopian tube cyst [Recovered/Resolved]

NARRATIVE: CASE EVENT DATE: 20240101
